FAERS Safety Report 9541015 (Version 2)
Quarter: 2013Q4

REPORT INFORMATION
  Report Type: Spontaneous
  Country: US (occurrence: US)
  Receive Date: 20130922
  Receipt Date: 20131031
  Transmission Date: 20140711
  Serious: No
  Sender: FDA-Public Use
  Company Number: US-009507513-1308USA014939

PATIENT
  Age: 17 Year
  Sex: Female
  Weight: 78.91 kg

DRUGS (4)
  1. NEXPLANON [Suspect]
     Indication: CONTRACEPTION
     Dosage: UNK
     Route: 059
     Dates: start: 20130709, end: 20130829
  2. NEXPLANON [Suspect]
     Dosage: UNK
     Route: 059
     Dates: start: 20130829
  3. FLUCONAZOLE [Concomitant]
     Dosage: 1 TAB EVERY 3 DAYS X 3 DOSES THEN ONCE WEEKLY X 6 MONTHS
     Route: 048
     Dates: start: 20130709, end: 2013
  4. FLUCONAZOLE [Concomitant]
     Dosage: 1 TAB EVERY 3 DAYS X 3 DOSES THEN ONCE WEEKLY X 6 MONTHS
     Route: 048
     Dates: start: 2013

REACTIONS (5)
  - Limb injury [Unknown]
  - Device kink [Recovered/Resolved]
  - Menorrhagia [Unknown]
  - Discomfort [Unknown]
  - Pain in extremity [Unknown]
